FAERS Safety Report 7142508-4 (Version None)
Quarter: 2010Q4

REPORT INFORMATION
  Report Type: 
  Country: None (occurrence: None)
  Receive Date: 20101207
  Receipt Date: 20101129
  Transmission Date: 20110411
  Serious: Yes (Hospitalization)
  Sender: FDA-Public Use
  Company Number: US-JNJFOC-20101109114

PATIENT
  Sex: Female

DRUGS (10)
  1. FLEXERIL [Suspect]
     Indication: INSOMNIA
     Route: 048
  2. FLEXERIL [Suspect]
     Dosage: 60 TO 80 MG
     Route: 048
  3. SAVELLA [Suspect]
     Indication: FIBROMYALGIA
     Route: 048
  4. SAVELLA [Suspect]
     Route: 048
  5. SAVELLA [Suspect]
     Route: 048
  6. SAVELLA [Suspect]
     Route: 048
  7. TRAZODONE [Suspect]
     Indication: INSOMNIA
     Dosage: 600 TO 800 MG
     Route: 048
  8. TRAZODONE [Suspect]
     Route: 048
  9. ALCOHOL [Suspect]
     Indication: PRODUCT USED FOR UNKNOWN INDICATION
     Dosage: 3 GLASSES OF WINE
     Route: 048
  10. AMBIEN [Concomitant]
     Indication: INSOMNIA
     Route: 048

REACTIONS (5)
  - DEPRESSION [None]
  - MOOD SWINGS [None]
  - MULTIPLE DRUG OVERDOSE INTENTIONAL [None]
  - SUICIDAL IDEATION [None]
  - SUICIDE ATTEMPT [None]
